FAERS Safety Report 18494542 (Version 1)
Quarter: 2020Q4

REPORT INFORMATION
  Report Type: Report from Study
  Country: IT (occurrence: IT)
  Receive Date: 20201112
  Receipt Date: 20201112
  Transmission Date: 20210114
  Serious: Yes (Hospitalization)
  Sender: FDA-Public Use
  Company Number: IT-TEVA-2020-IT-1847385

PATIENT
  Age: 68 Year
  Sex: Female

DRUGS (7)
  1. AUGMENTIN [Concomitant]
     Active Substance: AMOXICILLIN\CLAVULANATE POTASSIUM
     Dosage: 3 DOSAGE FORM
  2. AMIODARONE [Suspect]
     Active Substance: AMIODARONE
     Indication: TACHYCARDIA
     Dosage: 1 DOSAGE FORM
     Route: 048
     Dates: start: 20200919, end: 20200919
  3. LANSOX [Concomitant]
     Active Substance: LANSOPRAZOLE
  4. TORVAST 20 MG COMPRESSE RIVESTITE CON FILM [Concomitant]
     Dosage: 1 DOSAGE FORM
  5. PRADAXA [Concomitant]
     Active Substance: DABIGATRAN ETEXILATE MESYLATE
     Dosage: 2 DOSAGE FORM
  6. BISOPROLOL FUMARATE. [Concomitant]
     Active Substance: BISOPROLOL FUMARATE
     Dosage: 2.5 MG
  7. ZOPRANOL 30 MG COMPRESSE RIVESTITE CON FILM [Concomitant]
     Dosage: 1 DOSAGE FORM

REACTIONS (4)
  - Malaise [Recovering/Resolving]
  - Vertigo [Recovering/Resolving]
  - Intentional product misuse [Recovering/Resolving]
  - Bradycardia [Recovering/Resolving]

NARRATIVE: CASE EVENT DATE: 20200919
